FAERS Safety Report 9023526 (Version 2)
Quarter: 2013Q1

REPORT INFORMATION
  Report Type: Spontaneous
  Country: IT (occurrence: IT)
  Receive Date: 20130121
  Receipt Date: 20130211
  Transmission Date: 20140127
  Serious: Yes (Death)
  Sender: FDA-Public Use
  Company Number: IT-BAYER-2013-006439

PATIENT
  Age: 62 Year
  Sex: Male

DRUGS (7)
  1. CARDIOASPIRIN [Suspect]
     Indication: MYOCARDIAL ISCHAEMIA
     Dosage: 100 MG, QD
     Route: 048
     Dates: start: 20100101, end: 20130111
  2. NORVASC [Concomitant]
  3. CONGESCOR [Concomitant]
  4. OLMETEC [Concomitant]
  5. ALDOMET [Concomitant]
  6. PANTORC [Concomitant]
  7. NITRODERM TTS [Concomitant]

REACTIONS (1)
  - Cerebral haemorrhage [Fatal]
